FAERS Safety Report 25473672 (Version 1)
Quarter: 2025Q2

REPORT INFORMATION
  Report Type: Report from Study
  Country: US (occurrence: US)
  Receive Date: 20250624
  Receipt Date: 20250624
  Transmission Date: 20250717
  Serious: Yes (Hospitalization, Other)
  Sender: GILEAD
  Company Number: US-GILEAD-2025-0709154

PATIENT
  Age: 57 Year
  Sex: Female
  Weight: 70 kg

DRUGS (5)
  1. SACITUZUMAB GOVITECAN-HZIY [Suspect]
     Active Substance: SACITUZUMAB GOVITECAN-HZIY
     Indication: Cholangiocarcinoma
     Dosage: 748 MG, Q3WK ( DAY 1 AND DAY 8 OF EACH 21-DAY CYCLE)
     Route: 042
     Dates: start: 20250325
  2. SACITUZUMAB GOVITECAN-HZIY [Suspect]
     Active Substance: SACITUZUMAB GOVITECAN-HZIY
     Dosage: 561 MG, Q3WK, DAY 1 AND DAY 8 OF EACH 21-DAY CYCLE
     Route: 042
     Dates: start: 20250325
  3. SACITUZUMAB GOVITECAN-HZIY [Suspect]
     Active Substance: SACITUZUMAB GOVITECAN-HZIY
     Dosage: 561 MG, Q3WK
     Route: 042
     Dates: start: 20250409
  4. SACITUZUMAB GOVITECAN-HZIY [Suspect]
     Active Substance: SACITUZUMAB GOVITECAN-HZIY
     Dosage: 561 MG, Q3WK
     Route: 042
     Dates: start: 20250605
  5. SACITUZUMAB GOVITECAN-HZIY [Suspect]
     Active Substance: SACITUZUMAB GOVITECAN-HZIY
     Dosage: 561 MG, Q3WK ( DAY 1 AND DAY 8 OF EACH 21-DAY CYCLE)
     Route: 042
     Dates: start: 20250619

REACTIONS (2)
  - Cholangitis [Recovering/Resolving]
  - Biliary obstruction [Recovering/Resolving]

NARRATIVE: CASE EVENT DATE: 20250331
